FAERS Safety Report 10035444 (Version 2)
Quarter: 2014Q2

REPORT INFORMATION
  Report Type: Spontaneous
  Country: US (occurrence: US)
  Receive Date: 20140325
  Receipt Date: 20140408
  Transmission Date: 20141212
  Serious: No
  Sender: FDA-Public Use
  Company Number: US-PFIZER INC-2014083179

PATIENT
  Age: 59 Year
  Sex: Male

DRUGS (1)
  1. XELJANZ [Suspect]
     Indication: RHEUMATOID ARTHRITIS
     Dosage: 5MG (1 TABLET) TWICE DAILY
     Route: 048
     Dates: start: 20140303

REACTIONS (2)
  - Dyspepsia [Recovered/Resolved]
  - Eructation [Unknown]
